FAERS Safety Report 9015679 (Version 1)
Quarter: 2013Q1

REPORT INFORMATION
  Report Type: Spontaneous
  Country: AU (occurrence: None)
  Receive Date: 20130103
  Receipt Date: 20130103
  Transmission Date: 20140127
  Serious: Yes (Life-Threatening)
  Sender: FDA-Public Use
  Company Number: 2012-22901

PATIENT
  Age: 21 Year
  Sex: Female

DRUGS (10)
  1. MIDAZOLAM [Suspect]
     Indication: PRODUCT USED FOR UNKNOWN INDICATION
     Route: 048
  2. RANITIDINE HYDROCHLORIDE [Suspect]
     Indication: PRODUCT USED FOR UNKNOWN INDICATION
  3. FENTANYL (FENTANYL) [Suspect]
     Indication: PRODUCT USED FOR UNKNOWN INDICATION
  4. PROPOFOL [Suspect]
     Indication: PRODUCT USED FOR UNKNOWN INDICATION
     Route: 042
  5. NEOSTIGMINE [Suspect]
     Indication: PRODUCT USED FOR UNKNOWN INDICATION
  6. GLYCOPYRRONIUM [Suspect]
     Indication: PRODUCT USED FOR UNKNOWN INDICATION
  7. NITROUS OXIDE AIR [Suspect]
     Indication: PRODUCT USED FOR UNKNOWN INDICATION
  8. OXYGEN [Suspect]
     Indication: PRODUCT USED FOR UNKNOWN INDICATION
  9. DICLOFENAC [Concomitant]
  10. ROCURONIUM [Concomitant]

REACTIONS (4)
  - Atrioventricular dissociation [None]
  - Drug interaction [None]
  - Electrocardiogram QRS complex abnormal [None]
  - Heart rate decreased [None]
